FAERS Safety Report 6212893-6 (Version None)
Quarter: 2009Q2

REPORT INFORMATION
  Report Type: 
  Country: None (occurrence: None)
  Receive Date: 20090603
  Receipt Date: 20090529
  Transmission Date: 20091009
  Serious: Yes (Death)
  Sender: FDA-Public Use
  Company Number: JP-AVENTIS-200910897JP

PATIENT
  Age: 67 Year
  Sex: Male
  Weight: 49 kg

DRUGS (9)
  1. RILUTEK [Suspect]
     Indication: AMYOTROPHIC LATERAL SCLEROSIS
     Route: 048
     Dates: start: 20060801, end: 20080221
  2. TAKEPRON [Concomitant]
     Dosage: ROUTE: GASTROSTOMY TUBE
     Route: 050
     Dates: start: 20070724, end: 20080221
  3. DOGMATYL [Concomitant]
     Indication: DEPRESSION
     Dosage: ROUTE: GASTROSTOMY TUBE
     Route: 050
     Dates: start: 20070316, end: 20080221
  4. FLIVAS [Concomitant]
     Dosage: ROUTE: GASTROSTOMY TUBE
     Route: 050
     Dates: start: 20070316, end: 20080221
  5. DEANOSARL [Concomitant]
     Indication: DIZZINESS
     Dosage: ROUTE: GASTROSTOMY TUBE
     Route: 050
     Dates: start: 20070601, end: 20080221
  6. MUCODYNE [Concomitant]
     Indication: BRONCHITIS
     Dosage: ROUTE: GASTROSTOMY TUBE
     Route: 050
     Dates: start: 20060801, end: 20080221
  7. GASMOTIN [Concomitant]
     Dosage: ROUTE: GASTROSTOMY TUBE
     Route: 050
     Dates: start: 20070316, end: 20080221
  8. LOXONIN                            /00890701/ [Concomitant]
     Dosage: ROUTE: GASTROSTOMY TUBE
     Route: 050
     Dates: start: 20071004, end: 20080221
  9. LEDOLPER [Concomitant]
     Indication: INSOMNIA
     Dosage: ROUTE: GASTROSTOMY TUBE
     Route: 050
     Dates: start: 20071009, end: 20080221

REACTIONS (2)
  - INTERSTITIAL LUNG DISEASE [None]
  - RESPIRATORY FAILURE [None]
